FAERS Safety Report 6898110-2 (Version None)
Quarter: 2010Q3

REPORT INFORMATION
  Report Type: 
  Country: None (occurrence: None)
  Receive Date: 20100802
  Receipt Date: 20070907
  Transmission Date: 20110219
  Serious: No
  Sender: FDA-Public Use
  Company Number: US-PFIZER INC-2007075745

PATIENT
  Sex: Male
  Weight: 88.9 kg

DRUGS (16)
  1. LYRICA [Suspect]
     Indication: ARTHRITIS
     Dates: start: 20070710
  2. LIPITOR [Concomitant]
  3. AVODART [Concomitant]
  4. CYMBALTA [Concomitant]
  5. OMEPRAZOLE [Concomitant]
  6. POTASSIUM CHLORIDE [Concomitant]
  7. TERAZOSIN HCL [Concomitant]
  8. FUROSEMIDE [Concomitant]
  9. GLIPIZIDE [Concomitant]
  10. METFORMIN HCL [Concomitant]
  11. ASPIRIN [Concomitant]
  12. GLUCOSAMINE [Concomitant]
  13. CHONDROITIN [Concomitant]
  14. MULTI-VITAMINS [Concomitant]
  15. FIBRE, DIETARY [Concomitant]
  16. OSTEO BI-FLEX [Concomitant]

REACTIONS (3)
  - BALANCE DISORDER [None]
  - DIZZINESS [None]
  - DRUG INEFFECTIVE [None]
